FAERS Safety Report 15455511 (Version 6)
Quarter: 2023Q2

REPORT INFORMATION
  Report Type: Report from Study
  Country: CA (occurrence: CA)
  Receive Date: 20181002
  Receipt Date: 20230615
  Transmission Date: 20230722
  Serious: Yes (Other)
  Sender: FDA-Public Use
  Company Number: CA-GLAXOSMITHKLINE-CA2018GSK178041

PATIENT

DRUGS (6)
  1. ALBUTEROL SULFATE [Suspect]
     Active Substance: ALBUTEROL SULFATE
     Indication: Product used for unknown indication
     Dosage: 1 PUFF(S), PRN, 1 OR 2 PUFFS
     Route: 055
  2. SINGULAIR [Suspect]
     Active Substance: MONTELUKAST SODIUM
     Indication: Product used for unknown indication
     Dosage: UNK
  3. NUCALA [Suspect]
     Active Substance: MEPOLIZUMAB
     Indication: Asthma
     Dosage: 100 MG, Q4W (EVERY 4 WEEKS)
     Route: 058
     Dates: start: 20181018
  4. ALVESCO [Suspect]
     Active Substance: CICLESONIDE
     Indication: Product used for unknown indication
     Dosage: 2 PUFF(S), BID
     Route: 055
  5. ALVESCO [Suspect]
     Active Substance: CICLESONIDE
     Dosage: 1 PUFF(S), QD
  6. ZENHALE [Suspect]
     Active Substance: FORMOTEROL FUMARATE\MOMETASONE FUROATE
     Indication: Product used for unknown indication
     Dosage: 2 PUFF(S), BID 200/5 MCG
     Route: 055

REACTIONS (8)
  - Colitis ulcerative [Unknown]
  - Dyspnoea [Unknown]
  - Nasal polyps [Unknown]
  - Asthma [Unknown]
  - Loss of personal independence in daily activities [Unknown]
  - Wheezing [Unknown]
  - Sleep disorder due to a general medical condition [Unknown]
  - Drug ineffective [Unknown]
